FAERS Safety Report 17411680 (Version 2)
Quarter: 2020Q2

REPORT INFORMATION
  Report Type: Spontaneous
  Country: US (occurrence: US)
  Receive Date: 20200213
  Receipt Date: 20200406
  Transmission Date: 20200713
  Serious: Yes (Other)
  Sender: FDA-Public Use
  Company Number: US-CELGENEUS-USA-20200109826

PATIENT
  Sex: Male

DRUGS (1)
  1. POMALYST [Suspect]
     Active Substance: POMALIDOMIDE
     Indication: PLASMA CELL MYELOMA
     Dosage: 1 MILLIGRAM
     Route: 048
     Dates: start: 20191228

REACTIONS (5)
  - Laboratory test abnormal [Unknown]
  - Platelet count decreased [Unknown]
  - Full blood count decreased [Not Recovered/Not Resolved]
  - Atrial fibrillation [Unknown]
  - Coronary artery disease [Unknown]
